FAERS Safety Report 9932509 (Version 1)
Quarter: 2014Q1

REPORT INFORMATION
  Report Type: Spontaneous
  Country: US (occurrence: US)
  Receive Date: 20140228
  Receipt Date: 20140228
  Transmission Date: 20141002
  Serious: Yes (Other)
  Sender: FDA-Public Use
  Company Number: US-GLAXOSMITHKLINE-A1018072A

PATIENT
  Sex: Male

DRUGS (4)
  1. LAMICTAL [Suspect]
     Indication: CONVULSION
  2. POTIGA [Suspect]
     Indication: CONVULSION
     Route: 048
  3. KEPPRA [Concomitant]
  4. VIMPAT [Concomitant]

REACTIONS (1)
  - Convulsion [Unknown]
